FAERS Safety Report 6665425-2 (Version None)
Quarter: 2010Q1

REPORT INFORMATION
  Report Type: 
  Country: None (occurrence: None)
  Receive Date: 20100323
  Receipt Date: 20091125
  Transmission Date: 20100710
  Serious: Yes (Hospitalization)
  Sender: FDA-Public Use
  Company Number: 091125-0001196

PATIENT
  Age: 6 Year
  Sex: Male
  Weight: 23 kg

DRUGS (4)
  1. VIGABATRIN [Suspect]
     Indication: COMPLEX PARTIAL SEIZURES
     Dosage: 500 MG;BID;PO
     Route: 048
     Dates: end: 20091124
  2. CLOBAZAM [Concomitant]
  3. TOPAMAX [Concomitant]
  4. CLONAZEPAM [Concomitant]

REACTIONS (1)
  - CONVULSION [None]
